FAERS Safety Report 6266562-7 (Version None)
Quarter: 2009Q3

REPORT INFORMATION
  Report Type: 
  Country: None (occurrence: None)
  Receive Date: 20090710
  Receipt Date: 20090627
  Transmission Date: 20100115
  Serious: Yes (Other)
  Sender: FDA-Public Use
  Company Number: CHPA2009US14717

PATIENT
  Age: 22 Year
  Sex: Male
  Weight: 86.2 kg

DRUGS (1)
  1. EX-LAX MAX STR LAX PILLS SENNA (NCH) (SENNA EXTRACT)) TABLET [Suspect]
     Indication: CONSTIPATION
     Dosage: ORAL; 50 MG, QD, ORAL
     Route: 048
     Dates: start: 20090626

REACTIONS (3)
  - ABDOMINAL PAIN UPPER [None]
  - DRUG INEFFECTIVE [None]
  - LOSS OF CONSCIOUSNESS [None]
